FAERS Safety Report 19564836 (Version 1)
Quarter: 2021Q3

REPORT INFORMATION
  Report Type: Report from Study
  Country: KE (occurrence: KE)
  Receive Date: 20210714
  Receipt Date: 20210714
  Transmission Date: 20211014
  Serious: Yes (Hospitalization, Other)
  Sender: FDA-Public Use
  Company Number: KE-SEATTLE GENETICS-2021SGN01085

PATIENT
  Sex: Male

DRUGS (1)
  1. BRENTUXIMAB VEDOTIN [Suspect]
     Active Substance: BRENTUXIMAB VEDOTIN
     Indication: HODGKIN^S DISEASE REFRACTORY
     Dosage: 112 MILLIGRAM, Q3WEEKS
     Route: 042
     Dates: start: 20210106

REACTIONS (15)
  - Neutropenia [Unknown]
  - Cough [Unknown]
  - Acne [Unknown]
  - Pruritus [Unknown]
  - Bone pain [Unknown]
  - Constipation [Unknown]
  - Headache [Unknown]
  - Diarrhoea haemorrhagic [Unknown]
  - Rash morbilliform [Unknown]
  - Heart rate increased [Unknown]
  - Abdominal pain [Unknown]
  - Skin swelling [Unknown]
  - Skin burning sensation [Unknown]
  - Chest pain [Unknown]
  - Rash [Unknown]
